APPROVED DRUG PRODUCT: GEMONIL
Active Ingredient: METHARBITAL
Strength: 100MG
Dosage Form/Route: TABLET;ORAL
Application: N008322 | Product #001
Applicant: ABBVIE INC
Approved: Approved Prior to Jan 1, 1982 | RLD: No | RS: No | Type: DISCN